FAERS Safety Report 6801184-8 (Version None)
Quarter: 2010Q2

REPORT INFORMATION
  Report Type: 
  Country: None (occurrence: None)
  Receive Date: 20100629
  Receipt Date: 20100618
  Transmission Date: 20101027
  Serious: Yes (Other)
  Sender: FDA-Public Use
  Company Number: JP-PFIZER INC-2010068232

PATIENT

DRUGS (2)
  1. CABASER [Suspect]
     Indication: PARKINSON'S DISEASE
     Dosage: UNK
     Route: 048
  2. CARBIDOPA AND LEVODOPA [Concomitant]
     Dosage: UNK
     Route: 048

REACTIONS (1)
  - MOUTH HAEMORRHAGE [None]
